FAERS Safety Report 23262323 (Version 1)
Quarter: 2023Q4

REPORT INFORMATION
  Report Type: Report from Study
  Country: CN (occurrence: CN)
  Receive Date: 20231205
  Receipt Date: 20231205
  Transmission Date: 20240110
  Serious: Yes (Hospitalization)
  Sender: FDA-Public Use
  Company Number: CN-INCYTE CORPORATION-2022IN012033

PATIENT

DRUGS (6)
  1. RETIFANLIMAB [Suspect]
     Active Substance: RETIFANLIMAB
     Indication: Non-small cell lung cancer
     Dosage: 375 MILLIGRAM EVERY 3 WEEKS
     Route: 042
     Dates: start: 20210809, end: 20221209
  2. RETIFANLIMAB [Suspect]
     Active Substance: RETIFANLIMAB
     Dosage: 375 MILLIGRAM EVERY 3 WEEKS
     Route: 042
     Dates: start: 20221216
  3. PEMETREXED [Suspect]
     Active Substance: PEMETREXED
     Indication: Non-small cell lung cancer
     Dosage: 500 MG/M2 (EVERY 3 WEEKS)
     Route: 042
     Dates: start: 20210809, end: 20211014
  4. PEMETREXED [Suspect]
     Active Substance: PEMETREXED
     Dosage: 375 MG/M2 (ON DAY 1 OF CYCLE 4)
     Route: 042
     Dates: start: 20211116, end: 20211116
  5. CARBOPLATIN [Suspect]
     Active Substance: CARBOPLATIN
     Indication: Non-small cell lung cancer
     Dosage: AUC 5 (EVERY 3 WEEKS)
     Route: 042
     Dates: start: 20210809, end: 20211014
  6. CARBOPLATIN [Suspect]
     Active Substance: CARBOPLATIN
     Dosage: AUC 3.75 (ON DAY 1 OF CYCLE 4)
     Route: 042
     Dates: start: 20211116, end: 20211116

REACTIONS (1)
  - Hepatic function abnormal [Recovered/Resolved]

NARRATIVE: CASE EVENT DATE: 20221209
